FAERS Safety Report 5026355-5 (Version None)
Quarter: 2006Q2

REPORT INFORMATION
  Report Type: 
  Country: None (occurrence: None)
  Receive Date: 20060426
  Receipt Date: 20060202
  Transmission Date: 20061013
  Serious: Yes (Other)
  Sender: FDA-Public Use
  Company Number: 2006017869

PATIENT
  Age: 74 Year
  Sex: Female
  Weight: 68.0396 kg

DRUGS (6)
  1. LYRICA [Suspect]
     Indication: PAIN
     Dosage: 25 MG
     Dates: start: 20060131, end: 20060131
  2. ELAVIL [Concomitant]
  3. DALMANE [Concomitant]
  4. CARDIAC THERAPY (CARDIAC THERAPY) [Concomitant]
  5. ANTIHYPERTENSIVES (ANTIHYPERTENSIVES) [Concomitant]
  6. CHOLESTEROL (CHOLESTEROL) [Concomitant]

REACTIONS (2)
  - DRUG INEFFECTIVE [None]
  - THINKING ABNORMAL [None]
